FAERS Safety Report 22375113 (Version 5)
Quarter: 2024Q1

REPORT INFORMATION
  Report Type: Report from Study
  Country: US (occurrence: US)
  Receive Date: 20230527
  Receipt Date: 20240102
  Transmission Date: 20240409
  Serious: Yes (Other)
  Sender: FDA-Public Use
  Company Number: US-002147023-NVSC2023US118117

PATIENT
  Sex: Female

DRUGS (1)
  1. LEQVIO [Suspect]
     Active Substance: INCLISIRAN SODIUM
     Indication: Product used for unknown indication
     Dosage: UNK
     Route: 058
     Dates: start: 20230210

REACTIONS (5)
  - Diabetes mellitus [Unknown]
  - Blood triglycerides increased [Unknown]
  - Asthma [Unknown]
  - Injection site reaction [Recovered/Resolved]
  - Blood triglycerides abnormal [Unknown]
